FAERS Safety Report 7118701-3 (Version None)
Quarter: 2010Q4

REPORT INFORMATION
  Report Type: 
  Country: None (occurrence: None)
  Receive Date: 20101123
  Receipt Date: 20101109
  Transmission Date: 20110411
  Serious: No
  Sender: FDA-Public Use
  Company Number: US-PFIZER INC-2010149595

PATIENT

DRUGS (1)
  1. ADVIL [Suspect]
     Indication: LIMB INJURY

REACTIONS (1)
  - BLOOD PRESSURE INCREASED [None]
